FAERS Safety Report 9431321 (Version 1)
Quarter: 2013Q3

REPORT INFORMATION
  Report Type: Report from Study
  Country: MX (occurrence: MX)
  Receive Date: 20130730
  Receipt Date: 20130730
  Transmission Date: 20140515
  Serious: Yes (Other)
  Sender: FDA-Public Use
  Company Number: MX-009507513-1307MEX014925

PATIENT
  Age: 41 Year
  Sex: Male
  Weight: 65.31 kg

DRUGS (4)
  1. ALENDRONATE SODIUM [Suspect]
     Indication: OSTEOPOROSIS
     Dosage: 70 MG, QW
     Route: 048
     Dates: start: 20121029, end: 20130307
  2. LERSIVIRINE [Suspect]
     Indication: HIV INFECTION
     Dosage: 250 MG, 3 TABLETS PER DAY QD
     Route: 048
     Dates: start: 20110803, end: 20130303
  3. EMTRICITABINE (+) TENOFOVIR DISOPROXIL FUMARATE [Suspect]
     Indication: HIV INFECTION
     Dosage: 300MG/200MG , QD
     Route: 048
     Dates: start: 20110803, end: 20130303
  4. CALCIUM CARBONATE (+) CHOLECALCIFEROL [Suspect]
     Indication: OSTEOPOROSIS
     Dosage: 600/200 IU 2 TABLETS, QD
     Route: 048
     Dates: start: 20120317, end: 20130307

REACTIONS (3)
  - Blood creatine phosphokinase increased [Recovered/Resolved]
  - Blood lactate dehydrogenase increased [Recovered/Resolved]
  - Aspartate aminotransferase increased [Recovered/Resolved]
